FAERS Safety Report 8067195-2 (Version None)
Quarter: 2012Q1

REPORT INFORMATION
  Report Type: 
  Country: None (occurrence: None)
  Receive Date: 20120124
  Receipt Date: 20120120
  Transmission Date: 20120608
  Serious: Yes (Other)
  Sender: FDA-Public Use
  Company Number: US-GLAXOSMITHKLINE-A0945810A

PATIENT
  Age: 67 Year
  Sex: Female

DRUGS (4)
  1. DIABETES MEDICATION [Concomitant]
  2. ANTIHYPERTENSIVE [Concomitant]
  3. REQUIP [Suspect]
     Indication: RESTLESS LEGS SYNDROME
     Dosage: 1MG THREE TIMES PER DAY
     Route: 048
     Dates: start: 20100101, end: 20110909
  4. UNKNOWN GIVEN FOR HYPERCHOLESTEROLEMIA [Concomitant]

REACTIONS (13)
  - SOMNOLENCE [None]
  - INSOMNIA [None]
  - DISTURBANCE IN ATTENTION [None]
  - IMPAIRED DRIVING ABILITY [None]
  - LACERATION [None]
  - NERVE COMPRESSION [None]
  - INAPPROPRIATE SCHEDULE OF DRUG ADMINISTRATION [None]
  - SPINAL COLUMN INJURY [None]
  - AMNESIA [None]
  - FALL [None]
  - SUDDEN ONSET OF SLEEP [None]
  - LOSS OF CONSCIOUSNESS [None]
  - FEAR [None]
